FAERS Safety Report 10483639 (Version 10)
Quarter: 2015Q3

REPORT INFORMATION
  Report Type: Report from Study
  Country: MY (occurrence: MY)
  Receive Date: 20140926
  Receipt Date: 20150810
  Transmission Date: 20151125
  Serious: Yes (Hospitalization)
  Sender: FDA-Public Use
  Company Number: 2014MPI01171

PATIENT

DRUGS (10)
  1. TRAMADOL. [Concomitant]
     Active Substance: TRAMADOL
     Dosage: 50 MG, UNK
  2. VOLTAREN [Concomitant]
     Active Substance: DICLOFENAC SODIUM
  3. FOLATE [Concomitant]
     Active Substance: FOLATE SODIUM
  4. BRENTUXIMAB VEDOTIN [Suspect]
     Active Substance: BRENTUXIMAB VEDOTIN
     Indication: HODGKIN^S DISEASE
     Dosage: 79.2 MG, UNK
     Route: 042
     Dates: start: 20140721, end: 20140902
  5. TRAMADOL                           /00599202/ [Concomitant]
     Active Substance: TRAMADOL
  6. BRENTUXIMAB VEDOTIN [Suspect]
     Active Substance: BRENTUXIMAB VEDOTIN
     Indication: HODGKIN^S DISEASE
  7. CIPROFLOXACIN. [Concomitant]
     Active Substance: CIPROFLOXACIN
     Indication: PROPHYLAXIS
     Dosage: 50 MG, UNK
  8. B COMPLEX 50 [Concomitant]
  9. VOLTAREN [Concomitant]
     Active Substance: DICLOFENAC SODIUM
  10. CIPROFLOXACIN                      /00697202/ [Concomitant]

REACTIONS (1)
  - Serum sickness-like reaction [Recovered/Resolved]

NARRATIVE: CASE EVENT DATE: 20140830
